FAERS Safety Report 17585606 (Version 1)
Quarter: 2020Q1

REPORT INFORMATION
  Report Type: Report from Study
  Country: IT (occurrence: IT)
  Receive Date: 20200326
  Receipt Date: 20200326
  Transmission Date: 20200409
  Serious: Yes (Life-Threatening)
  Sender: FDA-Public Use
  Company Number: IT-MYLANLABS-2020M1031620

PATIENT
  Age: 67 Year
  Sex: Male
  Weight: 60 kg

DRUGS (2)
  1. VANCOMICINA MYLAN 500 MG POLVERE PER SOLUZIONE PER INFUSIONE [Suspect]
     Active Substance: VANCOMYCIN
     Indication: ENDOCARDITIS
     Dosage: 2 GRAM, QD
     Route: 042
     Dates: start: 20191217, end: 20200119
  2. GENTAMICIN. [Concomitant]
     Active Substance: GENTAMICIN
     Indication: ENDOCARDITIS
     Dosage: 240 MILLIGRAM
     Route: 042
     Dates: start: 20191217, end: 20191231

REACTIONS (8)
  - Drug reaction with eosinophilia and systemic symptoms [Recovering/Resolving]
  - Hypotension [Recovering/Resolving]
  - Periorbital oedema [Recovering/Resolving]
  - Diarrhoea [Recovering/Resolving]
  - Lymphadenopathy [Recovering/Resolving]
  - Anuria [Recovering/Resolving]
  - Hyperpyrexia [Recovering/Resolving]
  - Vomiting [Recovering/Resolving]

NARRATIVE: CASE EVENT DATE: 20200119
